FAERS Safety Report 8574411-7 (Version None)
Quarter: 2012Q3

REPORT INFORMATION
  Report Type: 
  Country: None (occurrence: None)
  Receive Date: 20120806
  Receipt Date: 20120727
  Transmission Date: 20120928
  Serious: Yes (Other)
  Sender: FDA-Public Use
  Company Number: JP-PFIZER INC-2012177904

PATIENT
  Age: 84 Year
  Sex: Female

DRUGS (2)
  1. LYRICA [Suspect]
     Dosage: 75 MG, 1X/DAY
     Route: 048
     Dates: end: 20120606
  2. LYRICA [Suspect]
     Dosage: 150 MG, 1X/DAY
     Route: 048
     Dates: start: 20120607, end: 20120723

REACTIONS (5)
  - RHABDOMYOLYSIS [None]
  - BLOOD CREATININE INCREASED [None]
  - MYOGLOBIN BLOOD INCREASED [None]
  - RENAL IMPAIRMENT [None]
  - BLOOD CREATINE PHOSPHOKINASE INCREASED [None]
